FAERS Safety Report 6157459-1 (Version None)
Quarter: 2009Q2

REPORT INFORMATION
  Report Type: 
  Country: None (occurrence: None)
  Receive Date: 20090416
  Receipt Date: 20090408
  Transmission Date: 20091009
  Serious: Yes (Hospitalization, Disabling)
  Sender: FDA-Public Use
  Company Number: US-SANOFI-SYNTHELABO-A03200901473

PATIENT
  Age: 71 Year
  Sex: Male

DRUGS (1)
  1. ELOXATIN [Suspect]
     Indication: COLON CANCER
     Route: 042
     Dates: start: 20090201, end: 20090201

REACTIONS (4)
  - ABASIA [None]
  - BACK PAIN [None]
  - NEUROPATHY PERIPHERAL [None]
  - TOXIC NEUROPATHY [None]
